FAERS Safety Report 8977015 (Version 1)
Quarter: 2012Q4

REPORT INFORMATION
  Report Type: 
  Country: US (occurrence: US)
  Receive Date: 20121220
  Receipt Date: 20121220
  Transmission Date: 20130627
  Serious: No
  Sender: FDA-Public Use
  Company Number: US-GLAXOSMITHKLINE-A0995135A

PATIENT
  Age: 61 Year
  Sex: Female

DRUGS (3)
  1. SORIATANE [Suspect]
     Indication: PSORIASIS
     Dosage: 25MG Per day
     Route: 048
     Dates: start: 20120826, end: 20120903
  2. ALCOHOL [Suspect]
  3. RAMIPRIL [Concomitant]
     Indication: HYPERTENSION

REACTIONS (7)
  - Presyncope [Recovered/Resolved]
  - Drug interaction [Unknown]
  - Blood pressure increased [Recovered/Resolved]
  - Hypoglycaemia [Unknown]
  - Skin exfoliation [Recovered/Resolved]
  - Skin exfoliation [Recovering/Resolving]
  - Dry skin [Unknown]
